FAERS Safety Report 7163913-6 (Version None)
Quarter: 2010Q4

REPORT INFORMATION
  Report Type: 
  Country: None (occurrence: None)
  Receive Date: 20101210
  Receipt Date: 20101210
  Transmission Date: 20110411
  Serious: No
  Sender: FDA-Public Use
  Company Number: None

PATIENT

DRUGS (1)
  1. SUDAFED PE [Suspect]

REACTIONS (8)
  - ANXIETY [None]
  - FEELING ABNORMAL [None]
  - IMPAIRED WORK ABILITY [None]
  - INSOMNIA [None]
  - NERVOUSNESS [None]
  - NEUROPATHY PERIPHERAL [None]
  - PALPITATIONS [None]
  - PRESYNCOPE [None]
